FAERS Safety Report 15684089 (Version 1)
Quarter: 2018Q4

REPORT INFORMATION
  Report Type: Spontaneous
  Country: US (occurrence: US)
  Receive Date: 20181204
  Receipt Date: 20181204
  Transmission Date: 20190205
  Serious: No
  Sender: FDA-Public Use
  Company Number: US-UNITED THERAPEUTICS-UNT-2018-019901

PATIENT

DRUGS (1)
  1. REMODULIN [Suspect]
     Active Substance: TREPROSTINIL
     Indication: PRODUCT USED FOR UNKNOWN INDICATION
     Dosage: UNK
     Route: 058
     Dates: start: 20170926

REACTIONS (8)
  - Infusion site swelling [Unknown]
  - Infusion site erosion [Unknown]
  - Infusion site infection [Recovered/Resolved]
  - Infusion site discharge [Unknown]
  - Impetigo [Unknown]
  - Infusion site erythema [Unknown]
  - Infusion site pruritus [Unknown]
  - Infusion site pain [Unknown]

NARRATIVE: CASE EVENT DATE: 201808
